FAERS Safety Report 9526524 (Version 1)
Quarter: 2013Q3

REPORT INFORMATION
  Report Type: Spontaneous
  Country: NO (occurrence: NO)
  Receive Date: 20130916
  Receipt Date: 20130916
  Transmission Date: 20140515
  Serious: Yes (Hospitalization, Other)
  Sender: FDA-Public Use
  Company Number: NO-B.I. PHARMACEUTICALS,INC./RIDGEFIELD-2013-SW-00440NO

PATIENT
  Age: 74 Year
  Sex: Male

DRUGS (9)
  1. PERSANTIN [Suspect]
     Dosage: 400 MG
  2. NON BI DRUG [Suspect]
  3. NON BI DRUG [Suspect]
  4. NON BI DRUG [Suspect]
  5. NON BI DRUG [Suspect]
  6. NON BI DRUG [Suspect]
     Dosage: 4 G
  7. NON BI DRUG [Suspect]
     Dosage: FORMULATION: PROLONGED-RELEASE CAPSULE
  8. NON BI DRUG [Suspect]
  9. NON BI DRUG [Suspect]
     Dosage: FORMULATION: PROLONGED-RELEASE TABLET

REACTIONS (10)
  - Listless [Unknown]
  - Benign prostatic hyperplasia [Unknown]
  - Somnolence [Unknown]
  - Dry mouth [Unknown]
  - Fall [Unknown]
  - General physical health deterioration [Unknown]
  - Drug interaction [Unknown]
  - Fine motor delay [Unknown]
  - Urinary retention [Unknown]
  - Dizziness [Unknown]
